FAERS Safety Report 13057294 (Version 1)
Quarter: 2016Q4

REPORT INFORMATION
  Report Type: Spontaneous
  Country: DE (occurrence: DE)
  Receive Date: 20161223
  Receipt Date: 20161223
  Transmission Date: 20170207
  Serious: Yes (Hospitalization, Other)
  Sender: FDA-Public Use
  Company Number: DE-MACLEODS PHARMACEUTICALS US LTD-MAC2016004085

PATIENT

DRUGS (4)
  1. CLOPIDOGREL [Suspect]
     Active Substance: CLOPIDOGREL BISULFATE
     Indication: CEREBROVASCULAR ACCIDENT
     Dosage: 75 MG, QD
     Route: 065
  2. DABIGATRAN [Suspect]
     Active Substance: DABIGATRAN
     Indication: PROPHYLAXIS
  3. CLOPIDOGREL [Suspect]
     Active Substance: CLOPIDOGREL BISULFATE
     Indication: PROPHYLAXIS
  4. DABIGATRAN [Suspect]
     Active Substance: DABIGATRAN
     Indication: CEREBROVASCULAR ACCIDENT
     Dosage: 110 MG, BID
     Route: 065

REACTIONS (10)
  - Coagulopathy [Unknown]
  - Haemorrhage [Not Recovered/Not Resolved]
  - Abdominal pain [Unknown]
  - Drug level increased [Unknown]
  - Peritonitis [Unknown]
  - Coagulation time prolonged [Unknown]
  - Rectal perforation [Unknown]
  - Vomiting [Unknown]
  - Ileus paralytic [Unknown]
  - Abdominal discomfort [Unknown]
